FAERS Safety Report 20988518 (Version 1)
Quarter: 2022Q2

REPORT INFORMATION
  Report Type: Spontaneous
  Country: US (occurrence: None)
  Receive Date: 20220621
  Receipt Date: 20220621
  Transmission Date: 20220720
  Serious: No
  Sender: FDA-Public Use
  Company Number: 2022A218169

PATIENT
  Sex: Female

DRUGS (1)
  1. BYETTA [Suspect]
     Active Substance: EXENATIDE
     Dosage: SINCE 15 TO 20 YEARS AGO
     Route: 058

REACTIONS (5)
  - Parosmia [Unknown]
  - Malaise [Unknown]
  - Device intolerance [Unknown]
  - Inappropriate schedule of product administration [Unknown]
  - Device use issue [Unknown]
